FAERS Safety Report 12623535 (Version 2)
Quarter: 2016Q3

REPORT INFORMATION
  Report Type: Spontaneous
  Country: US (occurrence: US)
  Receive Date: 20160804
  Receipt Date: 20160811
  Transmission Date: 20161109
  Serious: Yes (Other)
  Sender: FDA-Public Use
  Company Number: US-BAUSCH-BL-2016-018676

PATIENT
  Age: 63 Year
  Sex: Female

DRUGS (33)
  1. CITALOPRAM [Concomitant]
     Active Substance: CITALOPRAM HYDROBROMIDE
     Indication: PRODUCT USED FOR UNKNOWN INDICATION
  2. ZOLPIDEM [Concomitant]
     Active Substance: ZOLPIDEM\ZOLPIDEM TARTRATE
     Indication: PRODUCT USED FOR UNKNOWN INDICATION
  3. FOLINIC ACID [Suspect]
     Active Substance: LEUCOVORIN
     Indication: ADENOCARCINOMA OF APPENDIX
     Route: 065
     Dates: start: 2007
  4. FOLINIC ACID [Suspect]
     Active Substance: LEUCOVORIN
     Indication: RETROPERITONEAL CANCER
     Route: 065
     Dates: start: 201005
  5. AVASTIN [Suspect]
     Active Substance: BEVACIZUMAB
     Indication: ADENOCARCINOMA OF APPENDIX
     Route: 065
     Dates: start: 2007
  6. VITAMIN D [Concomitant]
     Active Substance: CHOLECALCIFEROL
     Indication: PRODUCT USED FOR UNKNOWN INDICATION
  7. METOPROLOL. [Concomitant]
     Active Substance: METOPROLOL
     Indication: PRODUCT USED FOR UNKNOWN INDICATION
  8. AMITRIPTYLINE [Concomitant]
     Active Substance: AMITRIPTYLINE
     Indication: PRODUCT USED FOR UNKNOWN INDICATION
  9. FOLINIC ACID [Suspect]
     Active Substance: LEUCOVORIN
     Indication: METASTASES TO PERITONEUM
     Route: 065
     Dates: start: 201105
  10. IRINOTECAN [Suspect]
     Active Substance: IRINOTECAN
     Indication: ADENOCARCINOMA OF APPENDIX
     Route: 065
     Dates: start: 2007
  11. XELODA [Suspect]
     Active Substance: CAPECITABINE
     Indication: COLON CANCER METASTATIC
  12. HYDROCODONE [Concomitant]
     Active Substance: HYDROCODONE
     Indication: PRODUCT USED FOR UNKNOWN INDICATION
  13. MECLIZINE [Concomitant]
     Active Substance: MECLIZINE HYDROCHLORIDE
     Indication: PRODUCT USED FOR UNKNOWN INDICATION
  14. FLUOROURACIL. [Suspect]
     Active Substance: FLUOROURACIL
     Indication: METASTASES TO PERITONEUM
     Route: 065
     Dates: start: 201005
  15. METFORMIN [Suspect]
     Active Substance: METFORMIN HYDROCHLORIDE
     Indication: PRODUCT USED FOR UNKNOWN INDICATION
     Route: 065
  16. IRINOTECAN [Suspect]
     Active Substance: IRINOTECAN
     Indication: RETROPERITONEAL CANCER
     Route: 065
     Dates: start: 201005
  17. LANSOPRAZOLE. [Suspect]
     Active Substance: LANSOPRAZOLE
     Indication: PRODUCT USED FOR UNKNOWN INDICATION
     Route: 065
  18. FLUOROURACIL. [Suspect]
     Active Substance: FLUOROURACIL
     Indication: RETROPERITONEAL CANCER
     Route: 065
     Dates: start: 2007, end: 201005
  19. IRINOTECAN [Suspect]
     Active Substance: IRINOTECAN
     Indication: COLON CANCER METASTATIC
     Dosage: ONCE IN 2 WEEKS
     Route: 065
  20. XELODA [Suspect]
     Active Substance: CAPECITABINE
     Indication: RETROPERITONEAL CANCER
     Route: 065
  21. AVASTIN [Suspect]
     Active Substance: BEVACIZUMAB
     Indication: METASTASES TO PERITONEUM
     Route: 065
     Dates: start: 201210
  22. AVASTIN [Suspect]
     Active Substance: BEVACIZUMAB
     Indication: COLON CANCER METASTATIC
  23. LORAZEPAM. [Concomitant]
     Active Substance: LORAZEPAM
     Indication: PRODUCT USED FOR UNKNOWN INDICATION
  24. ZANTAC [Concomitant]
     Active Substance: RANITIDINE HYDROCHLORIDE
     Indication: PRODUCT USED FOR UNKNOWN INDICATION
  25. FLUOROURACIL. [Suspect]
     Active Substance: FLUOROURACIL
     Indication: COLON CANCER METASTATIC
     Route: 065
     Dates: start: 201105
  26. IRINOTECAN [Suspect]
     Active Substance: IRINOTECAN
     Indication: METASTASES TO PERITONEUM
     Route: 065
     Dates: start: 201105
  27. IRINOTECAN [Suspect]
     Active Substance: IRINOTECAN
     Dosage: ONCE IN 3 WEEKS
     Route: 065
  28. LIPITOR [Concomitant]
     Active Substance: ATORVASTATIN CALCIUM
     Indication: PRODUCT USED FOR UNKNOWN INDICATION
  29. ZOFRAN [Concomitant]
     Active Substance: ONDANSETRON HYDROCHLORIDE
     Indication: PRODUCT USED FOR UNKNOWN INDICATION
  30. FOLINIC ACID [Suspect]
     Active Substance: LEUCOVORIN
     Indication: COLON CANCER METASTATIC
  31. AVASTIN [Suspect]
     Active Substance: BEVACIZUMAB
     Indication: RETROPERITONEAL CANCER
     Route: 065
     Dates: start: 201005
  32. CELECOXIB. [Concomitant]
     Active Substance: CELECOXIB
     Indication: PRODUCT USED FOR UNKNOWN INDICATION
  33. BENADRYL [Concomitant]
     Active Substance: DIPHENHYDRAMINE HYDROCHLORIDE
     Indication: PRODUCT USED FOR UNKNOWN INDICATION

REACTIONS (2)
  - Diarrhoea [Not Recovered/Not Resolved]
  - Hypomagnesaemia [Not Recovered/Not Resolved]
